FAERS Safety Report 24842836 (Version 1)
Quarter: 2025Q1

REPORT INFORMATION
  Report Type: Spontaneous
  Country: US (occurrence: US)
  Receive Date: 20250115
  Receipt Date: 20250115
  Transmission Date: 20250409
  Serious: Yes (Other)
  Sender: HRA PHARMA
  Company Number: US-ORG100014127-2024000111

PATIENT
  Age: 63 Year
  Sex: Male

DRUGS (3)
  1. MITOTANE [Suspect]
     Active Substance: MITOTANE
     Indication: Adjuvant therapy
     Dosage: TITRATED TO 1500 MG TWICE DAILY
     Route: 048
  2. ETOPOSIDE [Concomitant]
     Active Substance: ETOPOSIDE
     Indication: Adrenocortical carcinoma
  3. CISPLATIN [Concomitant]
     Active Substance: CISPLATIN
     Indication: Adrenocortical carcinoma

REACTIONS (3)
  - Central hypothyroidism [Unknown]
  - Adrenal insufficiency [Unknown]
  - Off label use [Unknown]
